FAERS Safety Report 5345489-9 (Version None)
Quarter: 2007Q2

REPORT INFORMATION
  Report Type: 
  Country: None (occurrence: None)
  Receive Date: 20070605
  Receipt Date: 20070524
  Transmission Date: 20071010
  Serious: Yes (Hospitalization)
  Sender: FDA-Public Use
  Company Number: ES-ELI_LILLY_AND_COMPANY-ES200705002271

PATIENT
  Age: 74 Year
  Sex: Female

DRUGS (3)
  1. FORTEO [Suspect]
     Indication: OSTEOPOROSIS
     Dosage: 20 UG, DAILY (1/D)
     Route: 058
     Dates: start: 20061001, end: 20070201
  2. FORTEO [Suspect]
     Dates: start: 20070510
  3. CLEXANE [Concomitant]

REACTIONS (3)
  - BONE FISSURE [None]
  - CEREBRAL HAEMORRHAGE [None]
  - FALL [None]
